FAERS Safety Report 21950048 (Version 1)
Quarter: 2023Q1

REPORT INFORMATION
  Report Type: Spontaneous
  Country: GB (occurrence: GB)
  Receive Date: 20230203
  Receipt Date: 20230203
  Transmission Date: 20230418
  Serious: Yes (Other)
  Sender: FDA-Public Use
  Company Number: GB-SUN PHARMACEUTICAL INDUSTRIES LTD-2023RR-375737

PATIENT

DRUGS (1)
  1. OXALIPLATIN [Suspect]
     Active Substance: OXALIPLATIN
     Indication: Product used for unknown indication
     Dosage: UNK
     Route: 065

REACTIONS (7)
  - Tachypnoea [Unknown]
  - Infusion related reaction [Unknown]
  - Abdominal pain [Unknown]
  - Flushing [Unknown]
  - Hyperhidrosis [Unknown]
  - Back pain [Unknown]
  - Product quality issue [Unknown]
